FAERS Safety Report 19417574 (Version 1)
Quarter: 2021Q2

REPORT INFORMATION
  Report Type: Spontaneous
  Country: US (occurrence: US)
  Receive Date: 20210615
  Receipt Date: 20210615
  Transmission Date: 20210717
  Serious: Yes (Death)
  Sender: FDA-Public Use
  Company Number: None

PATIENT
  Age: 57 Year
  Sex: Female

DRUGS (1)
  1. XELODA [Suspect]
     Active Substance: CAPECITABINE
     Indication: COLON CANCER
     Dosage: ?          OTHER DOSE:2000MG;OTHER FREQUENCY:BID X 14DAY ON 7;?
     Route: 048
     Dates: start: 20200611, end: 20210607

REACTIONS (1)
  - Death [None]

NARRATIVE: CASE EVENT DATE: 20210607
